FAERS Safety Report 9152576 (Version 1)
Quarter: 2013Q1

REPORT INFORMATION
  Report Type: Spontaneous
  Country: US (occurrence: US)
  Receive Date: 20130308
  Receipt Date: 20130308
  Transmission Date: 20140127
  Serious: No
  Sender: FDA-Public Use
  Company Number: US-ENDO PHARMACEUTICALS INC.-OPCR20120976

PATIENT
  Sex: Female
  Weight: 61.29 kg

DRUGS (4)
  1. OPANA ER [Suspect]
     Indication: NECK INJURY
     Route: 048
     Dates: start: 201204
  2. OPANA ER [Suspect]
     Indication: SPINAL FUSION SURGERY
  3. OPANA ER [Concomitant]
     Indication: NECK INJURY
     Route: 048
     Dates: start: 2008, end: 201204
  4. OPANA ER [Concomitant]
     Indication: SPINAL FUSION SURGERY

REACTIONS (3)
  - Frequent bowel movements [Not Recovered/Not Resolved]
  - Medication residue present [Not Recovered/Not Resolved]
  - Drug effect decreased [Not Recovered/Not Resolved]
